FAERS Safety Report 5936218-6 (Version None)
Quarter: 2008Q4

REPORT INFORMATION
  Report Type: 
  Country: None (occurrence: None)
  Receive Date: 20081030
  Receipt Date: 20070921
  Transmission Date: 20090506
  Serious: No
  Sender: FDA-Public Use
  Company Number: A0683540A

PATIENT
  Age: 78 Year
  Sex: Female

DRUGS (1)
  1. SEREVENT [Suspect]
     Indication: LUNG DISORDER
     Dosage: 1PUFF TWICE PER DAY
     Route: 055
     Dates: start: 20070511, end: 20070601

REACTIONS (2)
  - DRUG INEFFECTIVE [None]
  - SECRETION DISCHARGE [None]
